FAERS Safety Report 4897549-4 (Version None)
Quarter: 2006Q1

REPORT INFORMATION
  Report Type: 
  Country: None (occurrence: None)
  Receive Date: 20060130
  Receipt Date: 20060130
  Transmission Date: 20060701
  Serious: Yes (Life-Threatening)
  Sender: FDA-Public Use
  Company Number: None

PATIENT
  Sex: Female
  Weight: 66 kg

DRUGS (2)
  1. PROHANCE [Suspect]
     Indication: BONE CYST
     Dosage: 20 ML IV ONCE IV
     Route: 042
     Dates: start: 20060113
  2. PROHANCE [Suspect]
     Indication: BONE DISORDER
     Dosage: 20 ML IV ONCE IV
     Route: 042
     Dates: start: 20060113

REACTIONS (4)
  - ANGIONEUROTIC OEDEMA [None]
  - PHARYNGEAL OEDEMA [None]
  - STRIDOR [None]
  - WHEEZING [None]
